FAERS Safety Report 9308841 (Version 1)
Quarter: 2013Q2

REPORT INFORMATION
  Report Type: Spontaneous
  Country: US (occurrence: US)
  Receive Date: 20130524
  Receipt Date: 20130524
  Transmission Date: 20140414
  Serious: No
  Sender: FDA-Public Use
  Company Number: US-ASTRAZENECA-2013SE33657

PATIENT
  Age: 79 Year
  Sex: Female
  Weight: 59.9 kg

DRUGS (5)
  1. CRESTOR [Suspect]
     Indication: BLOOD CHOLESTEROL INCREASED
     Route: 048
     Dates: start: 20121116, end: 20130503
  2. NIFEDIPINE [Concomitant]
     Indication: HYPERTENSION
     Route: 048
  3. BABY ASPIRIN [Concomitant]
     Indication: SUPPLEMENTATION THERAPY
     Route: 048
  4. LEVOTHYROXINE [Concomitant]
     Indication: HYPOTHYROIDISM
     Route: 048
  5. CELEBREX [Concomitant]

REACTIONS (12)
  - Feeling hot [Recovering/Resolving]
  - Pain [Not Recovered/Not Resolved]
  - Limb discomfort [Recovered/Resolved]
  - Gait disturbance [Recovering/Resolving]
  - Burning sensation [Recovering/Resolving]
  - Pain [Recovering/Resolving]
  - Rash [Not Recovered/Not Resolved]
  - Myalgia [Not Recovered/Not Resolved]
  - Arthralgia [Recovering/Resolving]
  - Arthralgia [Recovering/Resolving]
  - Pain in extremity [Recovering/Resolving]
  - Arthralgia [Not Recovered/Not Resolved]
